FAERS Safety Report 8323889 (Version 4)
Quarter: 2013Q3

REPORT INFORMATION
  Report Type: Spontaneous
  Country: US (occurrence: US)
  Receive Date: 20120105
  Receipt Date: 20130726
  Transmission Date: 20140515
  Serious: Yes (Other)
  Sender: FDA-Public Use
  Company Number: US-ASTRAZENECA-2011SE52309

PATIENT
  Age: 69 Year
  Sex: Female

DRUGS (14)
  1. NEXIUM [Suspect]
     Route: 048
  2. METOPROLOL [Suspect]
     Route: 048
  3. ASPIRIN [Concomitant]
  4. CYMBALTA [Concomitant]
  5. HCTZ [Concomitant]
  6. CALCIUM [Concomitant]
  7. METHYLPHENIDATE [Concomitant]
  8. NUVIGIL [Concomitant]
  9. LOVASTATIN [Concomitant]
  10. VIIBYRD [Concomitant]
  11. CENTRUM SILVER [Concomitant]
  12. AMBIEN [Concomitant]
  13. HYDROCODONE [Concomitant]
  14. VITAMIN B12 [Concomitant]

REACTIONS (20)
  - Deafness unilateral [Unknown]
  - Hearing impaired [Unknown]
  - Upper limb fracture [Unknown]
  - Convulsion [Unknown]
  - Fall [Unknown]
  - Dysphonia [Unknown]
  - Dyspepsia [Unknown]
  - Adverse event [Unknown]
  - Tympanic membrane perforation [Unknown]
  - Hypertension [Unknown]
  - Pain [Unknown]
  - Blood cholesterol abnormal [Unknown]
  - Blood cholesterol increased [Unknown]
  - Visual acuity reduced [Unknown]
  - Dyspnoea [Unknown]
  - Amnesia [Unknown]
  - Dyspepsia [Unknown]
  - Malaise [Unknown]
  - Depression [Unknown]
  - Headache [Unknown]
